FAERS Safety Report 6135186-4 (Version None)
Quarter: 2009Q1

REPORT INFORMATION
  Report Type: 
  Country: None (occurrence: None)
  Receive Date: 20090327
  Receipt Date: 20071217
  Transmission Date: 20090719
  Serious: No
  Sender: FDA-Public Use
  Company Number: US-TYCO HEALTHCARE/MALLINCKRODT-T200701571

PATIENT

DRUGS (2)
  1. OPTIMARK IN PLASTIC SYRINGES [Suspect]
     Indication: NUCLEAR MAGNETIC RESONANCE IMAGING
     Dosage: 20 ML, SINGLE
     Route: 042
     Dates: start: 20071217, end: 20071217
  2. UNSPECIFIED MEDS [Concomitant]
     Indication: NUCLEAR MAGNETIC RESONANCE IMAGING

REACTIONS (4)
  - GLOSSODYNIA [None]
  - NASAL CONGESTION [None]
  - NASAL DISCOMFORT [None]
  - ORAL PRURITUS [None]
